FAERS Safety Report 7738693-3 (Version None)
Quarter: 2011Q3

REPORT INFORMATION
  Report Type: 
  Country: None (occurrence: None)
  Receive Date: 20110908
  Receipt Date: 20110902
  Transmission Date: 20111222
  Serious: Yes (Other)
  Sender: FDA-Public Use
  Company Number: PR-PFIZER INC-2009164131

PATIENT
  Sex: Female

DRUGS (3)
  1. VFEND [Suspect]
     Indication: ASPERGILLOSIS
  2. MAGNESIUM HYDROXIDE TAB [Suspect]
  3. PRIMAXIN [Suspect]

REACTIONS (2)
  - HALLUCINATION [None]
  - AGITATION [None]
